FAERS Safety Report 8449899-2 (Version None)
Quarter: 2012Q2

REPORT INFORMATION
  Report Type: 
  Country: None (occurrence: None)
  Receive Date: 20120620
  Receipt Date: 20120612
  Transmission Date: 20120825
  Serious: Yes (Hospitalization, Other)
  Sender: FDA-Public Use
  Company Number: PHFR2012GB002674

PATIENT
  Sex: Female

DRUGS (11)
  1. ALBUTEROL [Concomitant]
     Dosage: 1-2 P, QDS
  2. FLUOXETINE [Concomitant]
     Dosage: 20 MG, QD
     Route: 048
  3. BISOPROLOL FUMARATE [Concomitant]
     Dosage: 5 MG, QD
     Route: 048
  4. OMEPRAZOLE [Concomitant]
     Dosage: 20 MG, QD
     Route: 048
  5. SERETIDE 50 EVOHALER [Concomitant]
     Dosage: 2 P, OD
  6. LORAZEPAM [Concomitant]
     Dosage: 1 MG, AD
     Route: 048
  7. LAMOTRIGINE [Concomitant]
     Dosage: 100 MG, BID
     Route: 048
  8. CLOZARIL [Suspect]
     Indication: SCHIZOPHRENIA
     Route: 048
     Dates: start: 20040913
  9. CLOZARIL [Suspect]
     Dosage: 300 MG, (100 MG OM AND 200 MG ON)
     Route: 048
  10. FERROUS SULFATE TAB [Concomitant]
     Dosage: 200 MG, BID
     Route: 048
  11. ZOPICLONE [Concomitant]
     Dosage: 7.5 MG, PRN (ON)
     Route: 048

REACTIONS (8)
  - NECK PAIN [None]
  - LOCAL SWELLING [None]
  - SWELLING [None]
  - PYREXIA [None]
  - NEURALGIA [None]
  - TRIGEMINAL NEURALGIA [None]
  - PAROTID GLAND ENLARGEMENT [None]
  - HEADACHE [None]
